FAERS Safety Report 6250538-X (Version None)
Quarter: 2009Q2

REPORT INFORMATION
  Report Type: 
  Country: None (occurrence: None)
  Receive Date: 20090630
  Receipt Date: 20090619
  Transmission Date: 20091009
  Serious: Yes (Hospitalization)
  Sender: FDA-Public Use
  Company Number: FR-JNJFOC-20090609110

PATIENT
  Sex: Female

DRUGS (13)
  1. IXPRIM [Suspect]
     Indication: DRUG USE FOR UNKNOWN INDICATION
     Route: 048
  2. IMOVANE [Suspect]
     Indication: DRUG USE FOR UNKNOWN INDICATION
     Route: 048
  3. LEXOMIL [Suspect]
     Route: 048
  4. LEXOMIL [Suspect]
     Indication: DRUG USE FOR UNKNOWN INDICATION
     Route: 048
  5. SEROPLEX [Concomitant]
     Indication: DEMENTIA
  6. HEMIGOXINE [Concomitant]
  7. TAREG [Concomitant]
  8. CRESTOR [Concomitant]
  9. BISOPROLOL FUMARATE [Concomitant]
  10. OROCAL D3 [Concomitant]
  11. STRONTIUM [Concomitant]
  12. FLUINDIONE [Concomitant]
  13. DIFFU K [Concomitant]

REACTIONS (2)
  - BACK PAIN [None]
  - FALL [None]
